FAERS Safety Report 10191458 (Version 1)
Quarter: 2014Q2

REPORT INFORMATION
  Report Type: Spontaneous
  Country: DE (occurrence: DE)
  Receive Date: 20140523
  Receipt Date: 20140523
  Transmission Date: 20141212
  Serious: Yes (Other)
  Sender: FDA-Public Use
  Company Number: DE-DRREDDYS-GER/GER/14/0040513

PATIENT
  Age: 22 Year
  Sex: Female
  Weight: 55 kg

DRUGS (5)
  1. CIPROFLOXACIN [Suspect]
     Indication: PYELONEPHRITIS
     Route: 048
     Dates: start: 20130418, end: 20130425
  2. KEPINOL FORTE [Suspect]
     Indication: PYELONEPHRITIS
     Route: 048
     Dates: start: 20130415, end: 20130417
  3. CITALOPRAM [Concomitant]
     Indication: DEPRESSION
     Route: 048
     Dates: start: 20130715, end: 20130820
  4. AMOXICILLIN [Concomitant]
     Indication: OTITIS MEDIA
     Route: 048
     Dates: start: 20130805, end: 20130819
  5. FEMIBION [Concomitant]
     Indication: PROPHYLAXIS OF NEURAL TUBE DEFECT
     Route: 048
     Dates: start: 20130506, end: 20130816

REACTIONS (2)
  - Abortion induced [Unknown]
  - Exposure during pregnancy [Unknown]
